FAERS Safety Report 5815568-8 (Version None)
Quarter: 2008Q3

REPORT INFORMATION
  Report Type: 
  Country: None (occurrence: None)
  Receive Date: 20080718
  Receipt Date: 20080711
  Transmission Date: 20090109
  Serious: Yes (Life-Threatening, Hospitalization)
  Sender: FDA-Public Use
  Company Number: IN-PFIZER INC-2008058289

PATIENT
  Sex: Female

DRUGS (1)
  1. SERTRALINE [Suspect]
     Indication: DEPRESSION
     Dosage: DAILY DOSE:25MG

REACTIONS (7)
  - AGITATION [None]
  - ATRIAL FIBRILLATION [None]
  - HYPOTENSION [None]
  - LOSS OF CONSCIOUSNESS [None]
  - MYOCLONUS [None]
  - SEROTONIN SYNDROME [None]
  - TREMOR [None]
